FAERS Safety Report 10094211 (Version 1)
Quarter: 2014Q2

REPORT INFORMATION
  Report Type: Spontaneous
  Country: US (occurrence: None)
  Receive Date: 20140421
  Receipt Date: 20140421
  Transmission Date: 20141212
  Serious: Yes (Other)
  Sender: FDA-Public Use
  Company Number: None

PATIENT
  Age: 15 Year
  Sex: Male
  Weight: 88.45 kg

DRUGS (1)
  1. ALLEGRA [Suspect]
     Indication: MULTIPLE ALLERGIES
     Dosage: 180MG/ 1 PILL, ONCE DAILY
     Dates: start: 20140415, end: 20140418

REACTIONS (3)
  - Pruritus [None]
  - Scratch [None]
  - Haemorrhage [None]
